FAERS Safety Report 9258394 (Version 1)
Quarter: 2013Q1

REPORT INFORMATION
  Report Type: Spontaneous
  Country: US (occurrence: None)
  Receive Date: 20121212
  Receipt Date: 20121212
  Transmission Date: 20140127
  Serious: No
  Sender: FDA-Public Use
  Company Number: 1208USA009220

PATIENT
  Age: 55 Year
  Sex: Female

DRUGS (1)
  1. VICTRELIS [Suspect]
     Indication: HEPATITIS C
     Dosage: 800MG, TID, ORAL
     Route: 048
     Dates: start: 20120724

REACTIONS (8)
  - Back pain [None]
  - Glossodynia [None]
  - Eating disorder [None]
  - Regurgitation [None]
  - Dyspepsia [None]
  - Vomiting [None]
  - Anaemia [None]
  - Fatigue [None]
